FAERS Safety Report 14180298 (Version 2)
Quarter: 2017Q4

REPORT INFORMATION
  Report Type: Spontaneous
  Country: US (occurrence: US)
  Receive Date: 20171110
  Receipt Date: 20171112
  Transmission Date: 20180321
  Serious: Yes (Hospitalization, Other)
  Sender: FDA-Public Use
  Company Number: US-TEVA-825142USA

PATIENT
  Sex: Male
  Weight: 86.26 kg

DRUGS (17)
  1. METOPROLOL. [Concomitant]
     Active Substance: METOPROLOL
  2. PRADAXA [Concomitant]
     Active Substance: DABIGATRAN ETEXILATE MESYLATE
  3. TOLTERODINE TARTRATE. [Concomitant]
     Active Substance: TOLTERODINE TARTRATE
  4. TRAMADOL. [Concomitant]
     Active Substance: TRAMADOL
  5. SPIRONOLACTONE. [Concomitant]
     Active Substance: SPIRONOLACTONE
  6. NUVIGIL [Suspect]
     Active Substance: ARMODAFINIL
     Indication: SOMNOLENCE
     Dates: start: 2016
  7. ASPIRIN (E.C.) [Concomitant]
     Active Substance: ASPIRIN
  8. ARMODAFINIL. [Suspect]
     Active Substance: ARMODAFINIL
     Route: 065
  9. CLINDAMYCIN. [Concomitant]
     Active Substance: CLINDAMYCIN
  10. DIGOXIN. [Concomitant]
     Active Substance: DIGOXIN
  11. TAMSULOSIN [Concomitant]
     Active Substance: TAMSULOSIN
  12. VENLAFAXINE [Concomitant]
     Active Substance: VENLAFAXINE HYDROCHLORIDE
  13. ATORVASTATIN [Concomitant]
     Active Substance: ATORVASTATIN
  14. MELOXICAM. [Concomitant]
     Active Substance: MELOXICAM
  15. CYCLOBENZAPRINE. [Concomitant]
     Active Substance: CYCLOBENZAPRINE
  16. FUROSEMIDE. [Concomitant]
     Active Substance: FUROSEMIDE
  17. ENTRESTO [Concomitant]
     Active Substance: SACUBITRIL\VALSARTAN

REACTIONS (6)
  - Cardiac ablation [Unknown]
  - Cardiac pacemaker insertion [Recovered/Resolved]
  - Implantable defibrillator insertion [Recovered/Resolved]
  - Sleep apnoea syndrome [Recovered/Resolved]
  - Head injury [Recovered/Resolved]
  - Fall [Recovered/Resolved]
